FAERS Safety Report 5098375-6 (Version None)
Quarter: 2006Q3

REPORT INFORMATION
  Report Type: 
  Country: None (occurrence: None)
  Receive Date: 20060906
  Receipt Date: 20060208
  Transmission Date: 20061208
  Serious: Yes (Hospitalization)
  Sender: FDA-Public Use
  Company Number: FR-MERCK-0602FRA00020

PATIENT
  Age: 82 Year
  Sex: Female

DRUGS (6)
  1. FOSAMAX [Suspect]
     Indication: OSTEOPOROSIS
     Route: 048
  2. LEVOCETIRIZINE [Suspect]
     Indication: HYPERSENSITIVITY
     Route: 048
     Dates: start: 20040405, end: 20060118
  3. VERAPAMIL HYDROCHLORIDE [Suspect]
     Route: 048
  4. TRIMETAZIDINE HYDROCHLORIDE [Suspect]
     Route: 048
  5. CLORAZEPATE DIPOTASSIUM [Suspect]
     Indication: DEPRESSION
     Route: 048
  6. AMOXICILLIN [Suspect]
     Route: 048
     Dates: start: 20051126, end: 20051202

REACTIONS (2)
  - CYTOLYTIC HEPATITIS [None]
  - HEPATITIS CHOLESTATIC [None]
